FAERS Safety Report 6221143-6 (Version None)
Quarter: 2009Q2

REPORT INFORMATION
  Report Type: 
  Country: None (occurrence: None)
  Receive Date: 20090610
  Receipt Date: 20090603
  Transmission Date: 20091009
  Serious: Yes (Death)
  Sender: FDA-Public Use
  Company Number: NL-ROCHE-626514

PATIENT
  Age: 66 Year
  Sex: Male

DRUGS (5)
  1. OSELTAMIVIR [Suspect]
     Indication: INFLUENZA
     Route: 065
  2. MYCOPHENOLATE MOFETIL [Suspect]
     Indication: IMMUNOSUPPRESSION
     Route: 065
  3. PREDNISONE [Suspect]
     Indication: IMMUNOSUPPRESSION
     Route: 065
  4. CYCLOSPORINE [Suspect]
     Indication: IMMUNOSUPPRESSION
     Route: 065
  5. ZANAMIVIR [Suspect]
     Route: 065

REACTIONS (2)
  - PATHOGEN RESISTANCE [None]
  - PNEUMONIA INFLUENZAL [None]
